FAERS Safety Report 8894100 (Version 1)
Quarter: 2012Q4

REPORT INFORMATION
  Report Type: 
  Country: US (occurrence: US)
  Receive Date: 20121108
  Receipt Date: 20121108
  Transmission Date: 20130627
  Serious: No
  Sender: FDA-Public Use
  Company Number: US-009507513-1211USA002684

PATIENT
  Age: 65 Year
  Sex: Male

DRUGS (1)
  1. PRINIVIL [Suspect]
     Dosage: UNK, qd
     Route: 048
     Dates: end: 20121029

REACTIONS (1)
  - Dysarthria [Not Recovered/Not Resolved]
